FAERS Safety Report 13430963 (Version 1)
Quarter: 2017Q2

REPORT INFORMATION
  Report Type: Spontaneous
  Country: FR (occurrence: FR)
  Receive Date: 20170412
  Receipt Date: 20170412
  Transmission Date: 20170830
  Serious: Yes (Hospitalization)
  Sender: FDA-Public Use
  Company Number: FR-009507513-1704FRA004197

PATIENT
  Age: 16 Year
  Sex: Female
  Weight: 60.2 kg

DRUGS (5)
  1. NEO-CODION (CODEINE CAMSYLATE) [Suspect]
     Active Substance: CODEINE
     Indication: SUICIDE ATTEMPT
     Dosage: 10 TABLETS, SINGLE INTAKE
     Route: 048
     Dates: start: 20160901, end: 20160901
  2. NORSET [Suspect]
     Active Substance: MIRTAZAPINE
     Indication: SUICIDE ATTEMPT
     Dosage: 15 TABLETS, SINGLE INTAKE
     Route: 048
     Dates: start: 20160901, end: 20160901
  3. SPASMINE (HAWTHORN LEAF WITH FLOWER\VALERIAN) [Suspect]
     Active Substance: HAWTHORN LEAF WITH FLOWER\VALERIAN
     Indication: SUICIDE ATTEMPT
     Dosage: 2 TABLETS, SINGLE INTAKE
     Route: 048
     Dates: start: 20160901, end: 20160901
  4. CIRCADIN [Suspect]
     Active Substance: MELATONIN
     Indication: SUICIDE ATTEMPT
     Dosage: 3 TABLETS, SINGLE INTAKE
     Route: 048
     Dates: start: 20160901, end: 20160901
  5. BROMAZEPAM [Suspect]
     Active Substance: BROMAZEPAM
     Indication: SUICIDE ATTEMPT
     Dosage: 1 SINGLE INTAKE/ DOUBT ABOUT POSSIBLE USE
     Route: 048
     Dates: start: 20160901, end: 20160901

REACTIONS (5)
  - Drug screen positive [None]
  - Suicide attempt [None]
  - Electrocardiogram QT prolonged [Recovered/Resolved]
  - Somnolence [Recovered/Resolved]
  - Toxicity to various agents [Recovered/Resolved]

NARRATIVE: CASE EVENT DATE: 20160901
